FAERS Safety Report 9255839 (Version 1)
Quarter: 2013Q2

REPORT INFORMATION
  Report Type: Spontaneous
  Country: JP (occurrence: JP)
  Receive Date: 20130425
  Receipt Date: 20130425
  Transmission Date: 20140414
  Serious: Yes (Death, Other)
  Sender: FDA-Public Use
  Company Number: JP-ALEXION PHARMACEUTICALS INC.-A201300851

PATIENT
  Age: 53 Year
  Sex: Male

DRUGS (5)
  1. SOLIRIS 300MG [Suspect]
     Indication: PAROXYSMAL NOCTURNAL HAEMOGLOBINURIA
     Dosage: 900 MG, Q2W
     Route: 042
     Dates: start: 20120914, end: 20121115
  2. PREDONINE [Concomitant]
     Dosage: 5 MG, TID
     Route: 048
     Dates: start: 20120811, end: 20121121
  3. PRIMOBOLAN [Concomitant]
     Dosage: UNK
  4. BREDININ [Concomitant]
     Dosage: UNK
     Dates: start: 20120828, end: 20120913
  5. GRAN [Concomitant]
     Dosage: UNK
     Dates: start: 20121218

REACTIONS (4)
  - Pneumonia staphylococcal [Fatal]
  - Intracranial pressure increased [Not Recovered/Not Resolved]
  - Rash pruritic [Not Recovered/Not Resolved]
  - Headache [Recovered/Resolved]
